FAERS Safety Report 5487200-7 (Version None)
Quarter: 2007Q4

REPORT INFORMATION
  Report Type: 
  Country: None (occurrence: None)
  Receive Date: 20071016
  Receipt Date: 20071004
  Transmission Date: 20080405
  Serious: Yes (Other)
  Sender: FDA-Public Use
  Company Number: US-ELI_LILLY_AND_COMPANY-US200710001556

PATIENT
  Age: 46 Year
  Sex: Male
  Weight: 147.39 kg

DRUGS (1)
  1. CYMBALTA [Suspect]
     Indication: DEPRESSION
     Dosage: 60 MG, DAILY (1/D)
     Dates: start: 20060801, end: 20070831

REACTIONS (17)
  - ANAEMIA [None]
  - ANORGASMIA [None]
  - ASTHENIA [None]
  - BEDRIDDEN [None]
  - DEPRESSION [None]
  - DRUG WITHDRAWAL SYNDROME [None]
  - DYSARTHRIA [None]
  - ERECTILE DYSFUNCTION [None]
  - FEELING ABNORMAL [None]
  - HEADACHE [None]
  - LIBIDO DECREASED [None]
  - MALAISE [None]
  - PAIN [None]
  - PALPITATIONS [None]
  - PHOTOPHOBIA [None]
  - VISION BLURRED [None]
  - WEIGHT INCREASED [None]
